FAERS Safety Report 12326803 (Version 1)
Quarter: 2016Q2

REPORT INFORMATION
  Report Type: Spontaneous
  Country: US (occurrence: None)
  Receive Date: 20160502
  Receipt Date: 20160502
  Transmission Date: 20160815
  Serious: Yes (Other)
  Sender: FDA-Public Use
  Company Number: None

PATIENT
  Age: 62 Year
  Sex: Male
  Weight: 108.86 kg

DRUGS (2)
  1. CIPROFLOXACIN, 500 MG AUROBINDO PHARM [Suspect]
     Active Substance: CIPROFLOXACIN HYDROCHLORIDE
     Indication: DIVERTICULITIS
     Dosage: 1 TABLET(S) TWICE A DAY TAKEN BY MOUTH
     Route: 048
     Dates: start: 20160202, end: 20160204
  2. PREDNISONE. [Concomitant]
     Active Substance: PREDNISONE

REACTIONS (9)
  - Influenza like illness [None]
  - Tendonitis [None]
  - Activities of daily living impaired [None]
  - Arthralgia [None]
  - Musculoskeletal pain [None]
  - Musculoskeletal stiffness [None]
  - Gait disturbance [None]
  - Groin pain [None]
  - Discomfort [None]

NARRATIVE: CASE EVENT DATE: 20160204
